FAERS Safety Report 20560579 (Version 1)
Quarter: 2022Q1

REPORT INFORMATION
  Report Type: Report from Study
  Country: HK (occurrence: HK)
  Receive Date: 20220307
  Receipt Date: 20220307
  Transmission Date: 20220423
  Serious: Yes (Hospitalization)
  Sender: FDA-Public Use
  Company Number: HK-PFIZER INC-202200342698

PATIENT
  Age: 58 Year
  Sex: Female
  Weight: 45 kg

DRUGS (19)
  1. AVELUMAB [Suspect]
     Active Substance: AVELUMAB
     Indication: Cervix carcinoma
     Dosage: 10 MG/KG, CYCLIC (Q2W)
     Route: 042
     Dates: start: 20210727, end: 20211119
  2. AVELUMAB [Suspect]
     Active Substance: AVELUMAB
     Dosage: 10 MG/KG, CYCLIC (Q2W)
     Route: 042
     Dates: start: 20211231
  3. AXITINIB [Suspect]
     Active Substance: AXITINIB
     Indication: Cervix carcinoma
     Dosage: 5 MG, 2X/DAY
     Route: 048
     Dates: start: 20210727, end: 20210901
  4. AXITINIB [Suspect]
     Active Substance: AXITINIB
     Dosage: 5 MG, 2X/DAY
     Route: 048
     Dates: start: 20210923, end: 20211026
  5. AXITINIB [Suspect]
     Active Substance: AXITINIB
     Dosage: 5 MG, 2X/DAY
     Route: 048
     Dates: start: 20211103, end: 20211201
  6. AXITINIB [Suspect]
     Active Substance: AXITINIB
     Dosage: 3 MG, 2X/DAY
     Route: 048
     Dates: start: 20211231, end: 20220130
  7. AXITINIB [Suspect]
     Active Substance: AXITINIB
     Dosage: 3 MG, 2X/DAY
     Route: 048
     Dates: start: 20220201, end: 20220224
  8. LEVOTHYROXINE SODIUM [Concomitant]
     Active Substance: LEVOTHYROXINE SODIUM
     Indication: Hypothyroidism
     Route: 048
     Dates: start: 20211107
  9. CETIRIZINE [Concomitant]
     Active Substance: CETIRIZINE HYDROCHLORIDE
     Indication: Infusion related reaction
     Route: 048
     Dates: start: 20211020
  10. GABAPENTIN [Concomitant]
     Active Substance: GABAPENTIN
     Indication: Neuralgia
     Route: 048
     Dates: start: 20210723
  11. CELECOXIB [Concomitant]
     Active Substance: CELECOXIB
     Indication: Neuralgia
     Route: 048
     Dates: start: 20210720
  12. CHLORPHENIRAMINE MALEATE [Concomitant]
     Active Substance: CHLORPHENIRAMINE MALEATE
     Indication: Premedication
     Route: 042
     Dates: start: 20210827
  13. ACETAMINOPHEN [Concomitant]
     Active Substance: ACETAMINOPHEN
     Indication: Headache
     Route: 048
     Dates: start: 20210825
  14. ACTRAPID [Concomitant]
     Active Substance: INSULIN HUMAN
     Indication: Hyperglycaemia
     Route: 058
     Dates: start: 20211213
  15. LANTUS [Concomitant]
     Active Substance: INSULIN GLARGINE
     Indication: Hyperglycaemia
     Route: 058
     Dates: start: 20220127, end: 20220131
  16. LANTUS [Concomitant]
     Active Substance: INSULIN GLARGINE
     Route: 058
     Dates: start: 20220201
  17. INSULIN HUMAN [Concomitant]
     Active Substance: INSULIN HUMAN
     Indication: Hyperglycaemia
     Route: 058
     Dates: start: 20211218, end: 20220126
  18. METFORMIN HYDROCHLORIDE [Concomitant]
     Active Substance: METFORMIN HYDROCHLORIDE
     Indication: Hyperglycaemia
     Route: 048
     Dates: start: 20211214
  19. FAMOTIDINE [Concomitant]
     Active Substance: FAMOTIDINE
     Indication: Prophylaxis
     Route: 048
     Dates: start: 20211218

REACTIONS (2)
  - Hyperglycaemia [Recovered/Resolved]
  - Condition aggravated [Recovered/Resolved]

NARRATIVE: CASE EVENT DATE: 20220224
